FAERS Safety Report 12093027 (Version 1)
Quarter: 2016Q1

REPORT INFORMATION
  Report Type: Spontaneous
  Country: US (occurrence: US)
  Receive Date: 20160219
  Receipt Date: 20160219
  Transmission Date: 20160526
  Serious: No
  Sender: FDA-Public Use
  Company Number: US-PFIZER INC-2016094789

PATIENT
  Sex: Female
  Weight: 74.84 kg

DRUGS (6)
  1. METFORMIN [Interacting]
     Active Substance: METFORMIN HYDROCHLORIDE
     Indication: DIABETES MELLITUS
     Dosage: 1000 MG, 2X/DAY
  2. VALSARTAN/ HCTZ [Interacting]
     Active Substance: HYDROCHLOROTHIAZIDE\VALSARTAN
     Indication: HYPERTENSION
     Dosage: VALSARTAN 320-HCTZ 25 MG
  3. AMLODIPINE [Concomitant]
     Active Substance: AMLODIPINE BESYLATE
     Dosage: 10 MG, DAILY
  4. TRADJENTA [Interacting]
     Active Substance: LINAGLIPTIN
     Indication: DIABETES MELLITUS
     Dosage: 5 MG, UNK
  5. GABAPENTIN. [Suspect]
     Active Substance: GABAPENTIN
     Indication: NEURALGIA
     Dosage: 300 MG, UNK
     Dates: start: 201507, end: 20160210
  6. CLONIDINE. [Concomitant]
     Active Substance: CLONIDINE
     Dosage: UNK UNK, 2X/DAY

REACTIONS (4)
  - Drug ineffective for unapproved indication [Unknown]
  - Pain [Unknown]
  - Swelling [Unknown]
  - Drug interaction [Unknown]
